FAERS Safety Report 4414438-X (Version None)
Quarter: 2004Q3

REPORT INFORMATION
  Report Type: 
  Country: None (occurrence: None)
  Receive Date: 20040701
  Receipt Date: 20040512
  Transmission Date: 20050211
  Serious: Yes (Other)
  Sender: FDA-Public Use
  Company Number: 200417865BWH

PATIENT

DRUGS (1)
  1. AVELOX [Suspect]
     Dosage: 400 MG, TOTALY DAILY, INTRAVENOUS
     Route: 042

REACTIONS (1)
  - ELECTROCARDIOGRAM QT PROLONGED [None]
